FAERS Safety Report 9362846 (Version 1)
Quarter: 2013Q2

REPORT INFORMATION
  Report Type: Spontaneous
  Country: US (occurrence: US)
  Receive Date: 20130624
  Receipt Date: 20130624
  Transmission Date: 20140414
  Serious: Yes (Other)
  Sender: FDA-Public Use
  Company Number: US-AMGEN-USASP2013043392

PATIENT
  Age: 83 Year
  Sex: Female
  Weight: 68.5 kg

DRUGS (1)
  1. PROLIA [Suspect]
     Indication: OSTEOPOROSIS
     Dosage: UNK

REACTIONS (12)
  - Muscle spasms [Unknown]
  - Pain in jaw [Unknown]
  - Headache [Unknown]
  - Frequent bowel movements [Unknown]
  - Pollakiuria [Unknown]
  - Decreased appetite [Unknown]
  - Gastrointestinal ulcer [Unknown]
  - Hernia [Unknown]
  - Blood parathyroid hormone increased [Unknown]
  - Gastrooesophageal reflux disease [Unknown]
  - Pain in extremity [Unknown]
  - Blood calcium decreased [Unknown]
